FAERS Safety Report 9448017 (Version 6)
Quarter: 2013Q4

REPORT INFORMATION
  Report Type: Report from Study
  Country: JP (occurrence: JP)
  Receive Date: 20130808
  Receipt Date: 20131028
  Transmission Date: 20140711
  Serious: Yes (Hospitalization)
  Sender: FDA-Public Use
  Company Number: JP-JNJFOC-20130801189

PATIENT
  Age: 57 Year
  Sex: Male
  Weight: 61 kg

DRUGS (18)
  1. GOLIMUMAB [Suspect]
     Indication: COLITIS ULCERATIVE
     Route: 058
     Dates: start: 20130509, end: 20130509
  2. GOLIMUMAB [Suspect]
     Indication: COLITIS ULCERATIVE
     Route: 058
     Dates: end: 20130605
  3. GOLIMUMAB [Suspect]
     Indication: COLITIS ULCERATIVE
     Route: 058
     Dates: start: 20130520, end: 20130520
  4. REMICADE [Suspect]
     Indication: COLITIS ULCERATIVE
     Route: 042
     Dates: start: 20130612
  5. REMICADE [Suspect]
     Indication: COLITIS ULCERATIVE
     Route: 042
     Dates: start: 20130626
  6. REMICADE [Suspect]
     Indication: COLITIS ULCERATIVE
     Route: 042
     Dates: start: 20130724
  7. PENTCILLIN [Concomitant]
     Route: 042
     Dates: start: 20130717, end: 20130719
  8. BIO-THREE [Concomitant]
     Indication: COLITIS ULCERATIVE
     Route: 048
     Dates: start: 20121004
  9. TANATRIL [Concomitant]
     Indication: HYPERTENSION
     Route: 048
     Dates: start: 1999
  10. PENTASA [Concomitant]
     Indication: COLITIS ULCERATIVE
     Route: 048
     Dates: start: 20130306
  11. PREDONINE [Concomitant]
     Indication: COLITIS ULCERATIVE
     Route: 048
     Dates: start: 20130801, end: 20130814
  12. PREDONINE [Concomitant]
     Indication: COLITIS ULCERATIVE
     Route: 048
     Dates: start: 20130605, end: 20130612
  13. PREDONINE [Concomitant]
     Indication: COLITIS ULCERATIVE
     Route: 048
     Dates: start: 20130613, end: 20130626
  14. PREDONINE [Concomitant]
     Indication: COLITIS ULCERATIVE
     Route: 048
     Dates: start: 20130627, end: 20130710
  15. PREDONINE [Concomitant]
     Indication: COLITIS ULCERATIVE
     Route: 048
     Dates: start: 20130711, end: 20130724
  16. PREDONINE [Concomitant]
     Indication: COLITIS ULCERATIVE
     Route: 048
     Dates: start: 20130725, end: 20130731
  17. BACTRAMIN [Concomitant]
     Dosage: 4DF
     Route: 048
     Dates: start: 20130717, end: 20130728
  18. GENINAX [Concomitant]
     Route: 048
     Dates: start: 20130717, end: 20130728

REACTIONS (1)
  - Pneumonia bacterial [Recovered/Resolved]
